FAERS Safety Report 5585569-6 (Version None)
Quarter: 2008Q1

REPORT INFORMATION
  Report Type: 
  Country: None (occurrence: None)
  Receive Date: 20080109
  Receipt Date: 20080103
  Transmission Date: 20080703
  Serious: Yes (Other)
  Sender: FDA-Public Use
  Company Number: B0376996A

PATIENT
  Sex: Male

DRUGS (13)
  1. PAROXETINE [Suspect]
     Dates: start: 19990125, end: 20040601
  2. PRAVASTATIN [Concomitant]
  3. PROPRANOLOL [Concomitant]
  4. TEMAZEPAM [Concomitant]
  5. GAVISCON [Concomitant]
  6. LACTULOSE [Concomitant]
  7. LANSOPRAZOLE [Concomitant]
  8. CEFACLOR [Concomitant]
  9. BUSCOPAN [Concomitant]
  10. ROSUVASTATIN [Concomitant]
  11. ASPIRIN [Concomitant]
  12. PROZAC [Concomitant]
     Dates: start: 19930205
  13. EFFEXOR [Concomitant]
     Dates: start: 20011206

REACTIONS (30)
  - ABDOMINAL DISTENSION [None]
  - ABDOMINAL PAIN [None]
  - ABDOMINAL SYMPTOM [None]
  - AGGRESSION [None]
  - AGITATION [None]
  - ASTHENIA [None]
  - BILE DUCT OBSTRUCTION [None]
  - BILIARY COLIC [None]
  - CHOLELITHIASIS [None]
  - CHROMATURIA [None]
  - COLONIC POLYP [None]
  - CONFUSIONAL STATE [None]
  - DIARRHOEA [None]
  - DISTURBANCE IN ATTENTION [None]
  - DIVERTICULUM [None]
  - DIZZINESS [None]
  - DYSPEPSIA [None]
  - FATIGUE [None]
  - FLATULENCE [None]
  - HIATUS HERNIA [None]
  - INFLUENZA [None]
  - LETHARGY [None]
  - MEMORY IMPAIRMENT [None]
  - NIGHTMARE [None]
  - PARAESTHESIA [None]
  - SENSORY DISTURBANCE [None]
  - SLEEP DISORDER [None]
  - SUICIDAL IDEATION [None]
  - VERTIGO [None]
  - WITHDRAWAL SYNDROME [None]
